FAERS Safety Report 19330476 (Version 2)
Quarter: 2021Q2

REPORT INFORMATION
  Report Type: Report from Study
  Country: None (occurrence: CA)
  Receive Date: 20210528
  Receipt Date: 20210624
  Transmission Date: 20210717
  Serious: Yes (Other)
  Sender: FDA-Public Use
  Company Number: CA-ABBVIE-21K-028-3925350-00

PATIENT
  Age: 36 Year
  Sex: Female
  Weight: 65 kg

DRUGS (6)
  1. ESCITALOPRAM [Concomitant]
     Active Substance: ESCITALOPRAM OXALATE
     Indication: PRODUCT USED FOR UNKNOWN INDICATION
     Dates: start: 20200202
  2. ORILISSA [Suspect]
     Active Substance: ELAGOLIX SODIUM
     Indication: ENDOMETRIOSIS
     Route: 048
     Dates: start: 20200522, end: 20200715
  3. ORILISSA [Suspect]
     Active Substance: ELAGOLIX SODIUM
     Route: 048
     Dates: start: 20200716, end: 20210511
  4. MIRENA [Concomitant]
     Active Substance: LEVONORGESTREL
     Indication: PRODUCT USED FOR UNKNOWN INDICATION
     Dates: start: 2018
  5. ORILISSA [Suspect]
     Active Substance: ELAGOLIX SODIUM
     Route: 048
     Dates: start: 20210525, end: 2021
  6. BUPROPION. [Concomitant]
     Active Substance: BUPROPION
     Indication: PRODUCT USED FOR UNKNOWN INDICATION
     Dates: start: 20200827

REACTIONS (4)
  - Arthralgia [Unknown]
  - Haematochezia [Unknown]
  - Mucous stools [Unknown]
  - Diarrhoea [Unknown]

NARRATIVE: CASE EVENT DATE: 20210511
